FAERS Safety Report 8013416-1 (Version None)
Quarter: 2011Q4

REPORT INFORMATION
  Report Type: 
  Country: None (occurrence: None)
  Receive Date: 20111229
  Receipt Date: 20111221
  Transmission Date: 20120403
  Serious: Yes (Hospitalization)
  Sender: FDA-Public Use
  Company Number: FR-BAYER-2011-122652

PATIENT
  Age: 74 Year
  Sex: Male

DRUGS (10)
  1. ACARBOSE [Suspect]
     Indication: TYPE 2 DIABETES MELLITUS
     Dosage: 50 MG, BID
     Route: 048
     Dates: start: 20110711, end: 20110807
  2. FUCIDINE CAP [Suspect]
     Indication: OSTEITIS
     Dosage: 500 MG, TID
     Route: 048
     Dates: start: 20110711
  3. PROSCAR [Concomitant]
  4. ATORVASTATIN CALCIUM [Suspect]
     Indication: HYPERCHOLESTEROLAEMIA
     Dosage: 40 MG, QD
     Route: 048
     Dates: end: 20110807
  5. ASPIRIN [Concomitant]
  6. PLAVIX [Concomitant]
  7. REPAGLINIDE [Concomitant]
  8. LEVOFLOXACIN [Suspect]
     Dosage: 500 MG, BID
     Route: 048
     Dates: start: 20110711, end: 20110807
  9. COVERAM [Concomitant]
  10. ATENOLOL [Concomitant]

REACTIONS (1)
  - RHABDOMYOLYSIS [None]
